FAERS Safety Report 9785341 (Version 2)
Quarter: 2013Q4

REPORT INFORMATION
  Report Type: Spontaneous
  Country: US (occurrence: US)
  Receive Date: 20131227
  Receipt Date: 20131227
  Transmission Date: 20140711
  Serious: No
  Sender: FDA-Public Use
  Company Number: US-MYLANLABS-2013S1011156

PATIENT
  Age: 68 Year
  Sex: Female
  Weight: 58.97 kg

DRUGS (7)
  1. LEVETIRACETAM TABLETS [Suspect]
     Indication: CONVULSION
     Dosage: (1) IN THE AM AND (3) AT HS
     Route: 048
     Dates: start: 20130425, end: 2013
  2. LEVETIRACETAM TABLETS [Suspect]
     Indication: CONVULSION PROPHYLAXIS
     Dosage: (1) IN THE AM AND (3) AT HS
     Route: 048
     Dates: start: 20130425, end: 2013
  3. LEVETIRACETAM TABLETS [Suspect]
     Indication: CONVULSION
     Dosage: (1) IN THE AM AND (2) AT BEDTIME
     Dates: start: 2013
  4. LEVETIRACETAM TABLETS [Suspect]
     Indication: CONVULSION PROPHYLAXIS
     Dosage: (1) IN THE AM AND (2) AT BEDTIME
     Dates: start: 2013
  5. LAMOTRIGINE [Concomitant]
     Dates: start: 2008
  6. HCTZ [Concomitant]
  7. PROTONIX [Concomitant]

REACTIONS (1)
  - Dizziness [Recovered/Resolved]
